FAERS Safety Report 7897187-5 (Version None)
Quarter: 2011Q4

REPORT INFORMATION
  Report Type: 
  Country: None (occurrence: None)
  Receive Date: 20111107
  Receipt Date: 20111024
  Transmission Date: 20120403
  Serious: Yes (Hospitalization, Other)
  Sender: FDA-Public Use
  Company Number: US-ELI_LILLY_AND_COMPANY-US201110007386

PATIENT
  Age: 27 Year
  Sex: Male

DRUGS (3)
  1. OLANZAPINE [Suspect]
     Dosage: UNK, UNKNOWN
  2. BENZTROPINE MESYLATE [Concomitant]
  3. BUPROPION HCL [Concomitant]

REACTIONS (4)
  - DRUG INTERACTION [None]
  - COLITIS ISCHAEMIC [None]
  - CONSTIPATION [None]
  - LEUKOCYTOSIS [None]
